FAERS Safety Report 19643505 (Version 1)
Quarter: 2021Q3

REPORT INFORMATION
  Report Type: Report from Study
  Country: US (occurrence: US)
  Receive Date: 20210730
  Receipt Date: 20210730
  Transmission Date: 20211014
  Serious: Yes (Hospitalization)
  Sender: FDA-Public Use
  Company Number: US-SEATTLE GENETICS-2021SGN03832

PATIENT
  Age: 87 Year
  Sex: Male
  Weight: 79.7 kg

DRUGS (2)
  1. BRENTUXIMAB VEDOTIN [Suspect]
     Active Substance: BRENTUXIMAB VEDOTIN
     Indication: FOLLICULAR LYMPHOMA
     Dosage: 1.8 MG/KG, Q3WEEKS
     Route: 042
     Dates: start: 20210507
  2. BENDAMUSTINE HYDROCHLORIDE. [Suspect]
     Active Substance: BENDAMUSTINE HYDROCHLORIDE
     Indication: FOLLICULAR LYMPHOMA
     Dosage: 70 MG/M2, Q3WEEKS
     Route: 042
     Dates: start: 20210507

REACTIONS (11)
  - Hypokalaemia [Unknown]
  - Loss of personal independence in daily activities [Unknown]
  - Mobility decreased [Unknown]
  - Dehydration [Unknown]
  - Dizziness [Unknown]
  - Blood electrolytes abnormal [Unknown]
  - Feeling abnormal [Unknown]
  - Colitis [Unknown]
  - Asthenia [Unknown]
  - Diarrhoea [Unknown]
  - Infection [Unknown]
